FAERS Safety Report 17556514 (Version 2)
Quarter: 2020Q3

REPORT INFORMATION
  Report Type: Report from Study
  Country: US (occurrence: US)
  Receive Date: 20200318
  Receipt Date: 20200702
  Transmission Date: 20201102
  Serious: Yes (Death, Life-Threatening, Other)
  Sender: FDA-Public Use
  Company Number: NVSC2020US073101

PATIENT
  Age: 68 Year
  Sex: Male

DRUGS (2)
  1. BENDAMUSTINE [Concomitant]
     Active Substance: BENDAMUSTINE
     Indication: CHEMOTHERAPY
     Route: 065
  2. KYMRIAH [Suspect]
     Active Substance: TISAGENLECLEUCEL
     Indication: DIFFUSE LARGE B-CELL LYMPHOMA
     Dosage: ONCE/SINGLE
     Route: 041
     Dates: start: 2019

REACTIONS (10)
  - Malignant neoplasm progression [Fatal]
  - Paraparesis [Unknown]
  - Neurotoxicity [Unknown]
  - Motor dysfunction [Unknown]
  - Hemiparesis [Unknown]
  - Hypogammaglobulinaemia [Unknown]
  - Haematocrit decreased [Unknown]
  - Diffuse large B-cell lymphoma [Fatal]
  - Neuropathy peripheral [Unknown]
  - Haemoglobin decreased [Unknown]
